FAERS Safety Report 4529311-6 (Version None)
Quarter: 2004Q4

REPORT INFORMATION
  Report Type: 
  Country: None (occurrence: None)
  Receive Date: 20041214
  Receipt Date: 20041201
  Transmission Date: 20050328
  Serious: Yes (Death)
  Sender: FDA-Public Use
  Company Number: 2004103282

PATIENT
  Age: 45 Year
  Sex: Male

DRUGS (5)
  1. ZELDOX (CAPSULES) (ZIPRASIDONE) [Suspect]
     Indication: ILL-DEFINED DISORDER
     Dosage: 160 MG (80 MG, 2 IN 1 D), ORAL
     Route: 048
     Dates: start: 20040830
  2. OLANZAPINE [Concomitant]
  3. ZOPICLONE (ZOPICLONE) [Concomitant]
  4. OXAZEPAM [Concomitant]
  5. WARFARIN SODIUM [Concomitant]

REACTIONS (1)
  - SUDDEN CARDIAC DEATH [None]
